FAERS Safety Report 10489370 (Version 2)
Quarter: 2014Q4

REPORT INFORMATION
  Report Type: Spontaneous
  Country: AE (occurrence: AE)
  Receive Date: 20141002
  Receipt Date: 20141010
  Transmission Date: 20150528
  Serious: Yes (Life-Threatening)
  Sender: FDA-Public Use
  Company Number: US-ASTRAZENECA-2014SE73460

PATIENT
  Age: 57 Year
  Sex: Male
  Weight: 108 kg

DRUGS (7)
  1. BYDUREON [Suspect]
     Active Substance: EXENATIDE
     Indication: DIABETES MELLITUS
     Dosage: EVERY DAY
     Route: 058
     Dates: start: 20120104, end: 20120213
  2. VALSARTAN. [Concomitant]
     Active Substance: VALSARTAN
  3. ROSUVASTATIN [Suspect]
     Active Substance: ROSUVASTATIN
     Route: 048
  4. TREDAPTIVE [Suspect]
     Active Substance: LAROPIPRANT\NICOTINIC ACID HYDRAZIDE
     Indication: DYSLIPIDAEMIA
     Dosage: EVERY DAY
     Route: 048
     Dates: start: 20120104, end: 20120213
  5. AMLODIPINE [Concomitant]
     Active Substance: AMLODIPINE BESYLATE
  6. CLOPIDOGREL BISULFATE. [Concomitant]
     Active Substance: CLOPIDOGREL BISULFATE
  7. INSULIN [Concomitant]
     Active Substance: INSULIN NOS
     Dosage: BASAL / BOLUS INSULIN.

REACTIONS (1)
  - Hepatitis cholestatic [Recovered/Resolved]

NARRATIVE: CASE EVENT DATE: 20120215
